FAERS Safety Report 24601902 (Version 1)
Quarter: 2024Q4

REPORT INFORMATION
  Report Type: Spontaneous
  Country: PT (occurrence: PT)
  Receive Date: 20241111
  Receipt Date: 20241111
  Transmission Date: 20250114
  Serious: Yes (Hospitalization)
  Sender: ACCORD
  Company Number: PT-Accord-454718

PATIENT
  Age: 54 Year
  Sex: Female

DRUGS (8)
  1. SERTRALINE [Suspect]
     Active Substance: SERTRALINE HYDROCHLORIDE
     Indication: Depression
  2. METFORMIN [Concomitant]
     Active Substance: METFORMIN HYDROCHLORIDE
     Indication: Blood glucose increased
  3. LISINOPRIL [Concomitant]
     Active Substance: LISINOPRIL
     Indication: Arterial disorder
  4. ASPIRIN [Concomitant]
     Active Substance: ASPIRIN
  5. PREDNISOLONE [Concomitant]
     Active Substance: PREDNISOLONE
  6. METHOTREXATE [Concomitant]
     Active Substance: METHOTREXATE
  7. ATORVASTATIN [Concomitant]
     Active Substance: ATORVASTATIN
     Indication: Dyslipidaemia
  8. FENOFIBRATE [Concomitant]
     Active Substance: FENOFIBRATE
     Indication: Dyslipidaemia

REACTIONS (3)
  - Phospholipidosis [Recovering/Resolving]
  - Proteinuria [Recovering/Resolving]
  - Haematuria [Recovering/Resolving]
